FAERS Safety Report 8986269 (Version 1)
Quarter: 2012Q4

REPORT INFORMATION
  Report Type: 
  Country: IT (occurrence: IT)
  Receive Date: 20121227
  Receipt Date: 20121227
  Transmission Date: 20130627
  Serious: Yes (Other)
  Sender: FDA-Public Use
  Company Number: IT-ELI_LILLY_AND_COMPANY-IT201212005573

PATIENT
  Sex: Female

DRUGS (1)
  1. FORSTEO [Suspect]
     Dosage: UNK

REACTIONS (3)
  - Paralysis [Recovered/Resolved]
  - Muscle spasms [Recovering/Resolving]
  - Chest pain [Recovering/Resolving]
